FAERS Safety Report 4437240-1 (Version None)
Quarter: 2004Q3

REPORT INFORMATION
  Report Type: 
  Country: None (occurrence: None)
  Receive Date: 20040728
  Receipt Date: 20040527
  Transmission Date: 20050211
  Serious: Yes (Other)
  Sender: FDA-Public Use
  Company Number: TOS-000630

PATIENT
  Age: 66 Year
  Sex: Male
  Weight: 82.8 kg

DRUGS (4)
  1. TOSITUMOMAB, IODINE I 131 TOSITUMOMAB (TOSITUMOMAB, IODINE I 131 TOSIT [Suspect]
     Indication: NON-HODGKIN'S LYMPHOMA
     Dosage: TOSITUMOMAB 450 MG, INTRAVENOUS; SEE IMAGE
     Route: 042
     Dates: start: 20040315, end: 20040315
  2. TOSITUMOMAB, IODINE I 131 TOSITUMOMAB (TOSITUMOMAB, IODINE I 131 TOSIT [Suspect]
     Indication: NON-HODGKIN'S LYMPHOMA
     Dosage: TOSITUMOMAB 450 MG, INTRAVENOUS; SEE IMAGE
     Route: 042
     Dates: start: 20040315, end: 20040315
  3. TOSITUMOMAB, IODINE I 131 TOSITUMOMAB (TOSITUMOMAB, IODINE I 131 TOSIT [Suspect]
     Indication: NON-HODGKIN'S LYMPHOMA
     Dosage: TOSITUMOMAB 450 MG, INTRAVENOUS; SEE IMAGE
     Route: 042
     Dates: start: 20040324, end: 20040324
  4. TOSITUMOMAB, IODINE I 131 TOSITUMOMAB (TOSITUMOMAB, IODINE I 131 TOSIT [Suspect]
     Indication: NON-HODGKIN'S LYMPHOMA
     Dosage: TOSITUMOMAB 450 MG, INTRAVENOUS; SEE IMAGE
     Route: 042
     Dates: start: 20040324, end: 20040324

REACTIONS (1)
  - THROMBOCYTOPENIA [None]
